FAERS Safety Report 16370053 (Version 1)
Quarter: 2019Q2

REPORT INFORMATION
  Report Type: Spontaneous
  Country: CH (occurrence: CH)
  Receive Date: 20190530
  Receipt Date: 20190530
  Transmission Date: 20190711
  Serious: Yes (Hospitalization)
  Sender: FDA-Public Use
  Company Number: CH-ROCHE-2323898

PATIENT
  Sex: Male
  Weight: 127 kg

DRUGS (7)
  1. AVASTIN [Suspect]
     Active Substance: BEVACIZUMAB
     Route: 065
     Dates: start: 20180716
  2. KEPPRA [Concomitant]
     Active Substance: LEVETIRACETAM
     Dosage: 1000 MG PO 1-0-1-0
     Route: 050
  3. DAFALGAN [Concomitant]
     Active Substance: ACETAMINOPHEN
     Route: 065
  4. AVASTIN [Suspect]
     Active Substance: BEVACIZUMAB
     Route: 065
     Dates: start: 20180702
  5. DEXAMETHASONUM [Concomitant]
     Active Substance: DEXAMETHASONE
     Dosage: 1/2-0-0-0
     Route: 050
  6. AVASTIN [Suspect]
     Active Substance: BEVACIZUMAB
     Indication: GLIOBLASTOMA
     Route: 065
     Dates: start: 20180626
  7. ESOMEPRAZOLE. [Concomitant]
     Active Substance: ESOMEPRAZOLE MAGNESIUM
     Dosage: 1/2-0-0-0
     Route: 065

REACTIONS (3)
  - Cardiac failure [Unknown]
  - Stasis dermatitis [Unknown]
  - Oedema peripheral [Unknown]
